FAERS Safety Report 25167408 (Version 2)
Quarter: 2025Q2

REPORT INFORMATION
  Report Type: Spontaneous
  Country: PR (occurrence: PR)
  Receive Date: 20250407
  Receipt Date: 20250602
  Transmission Date: 20250716
  Serious: No
  Sender: SANOFI AVENTIS
  Company Number: PR-SA-2025SA098054

PATIENT
  Sex: Female

DRUGS (1)
  1. DUPIXENT [Suspect]
     Active Substance: DUPILUMAB
     Indication: Dermatitis atopic
     Dosage: 300 MG, QOW
     Route: 058
     Dates: start: 20221107

REACTIONS (4)
  - Muscle spasms [Not Recovered/Not Resolved]
  - Rhinitis allergic [Recovered/Resolved]
  - Visual impairment [Not Recovered/Not Resolved]
  - Dizziness [Recovered/Resolved]
